FAERS Safety Report 9314029 (Version 1)
Quarter: 2013Q2

REPORT INFORMATION
  Report Type: Spontaneous
  Country: US (occurrence: None)
  Receive Date: 20130524
  Receipt Date: 20130524
  Transmission Date: 20140414
  Serious: No
  Sender: FDA-Public Use
  Company Number: None

PATIENT
  Age: 84 Year
  Sex: Female
  Weight: 83.01 kg

DRUGS (1)
  1. OMNIPAQUE [Suspect]
     Indication: LUNG INFILTRATION
     Route: 042
     Dates: start: 20130430, end: 20130430

REACTIONS (1)
  - Infusion site extravasation [None]
